FAERS Safety Report 4273075-0 (Version None)
Quarter: 2004Q1

REPORT INFORMATION
  Report Type: 
  Country: None (occurrence: None)
  Receive Date: 20040114
  Receipt Date: 20031229
  Transmission Date: 20041129
  Serious: Yes (Life-Threatening)
  Sender: FDA-Public Use
  Company Number: BCM-000772

PATIENT
  Age: 85 Year
  Sex: Female

DRUGS (1)
  1. IOPAMIDOL /IOPAMIRO 370 (BATCH # (S): 3710) [Suspect]
     Indication: DIAGNOSTIC PROCEDURE
     Dosage: 120 ML, IV
     Route: 042
     Dates: start: 20031219, end: 20031219

REACTIONS (6)
  - ABNORMAL CHEST SOUND [None]
  - CARDIO-RESPIRATORY ARREST [None]
  - CYANOSIS [None]
  - LOSS OF CONSCIOUSNESS [None]
  - PULMONARY OEDEMA [None]
  - WHEEZING [None]
